FAERS Safety Report 7054340-0 (Version None)
Quarter: 2010Q4

REPORT INFORMATION
  Report Type: 
  Country: None (occurrence: None)
  Receive Date: 20101020
  Receipt Date: 20101011
  Transmission Date: 20110411
  Serious: Yes (Hospitalization)
  Sender: FDA-Public Use
  Company Number: NL-ABBOTT-10P-114-0655827-00

PATIENT
  Sex: Female
  Weight: 100 kg

DRUGS (6)
  1. HUMIRA [Suspect]
     Indication: CROHN'S DISEASE
     Dosage: DAY 0: 1 TIME 80 MG DOSE
     Route: 058
     Dates: start: 20100618, end: 20100618
  2. HUMIRA [Suspect]
     Route: 058
     Dates: end: 20100702
  3. CITALOPRAM HYDROBROMIDE [Concomitant]
     Indication: ANTIDEPRESSANT THERAPY
     Route: 048
  4. IMURAN [Concomitant]
     Indication: CROHN'S DISEASE
     Route: 048
  5. PRIMOLUT [Concomitant]
     Indication: MENSTRUAL DISORDER
     Route: 048
  6. TRAMADOL HCL [Concomitant]
     Indication: PAIN
     Dosage: 50 MG TABLETS, 3 TABLETS DAILY AS NEEDED

REACTIONS (5)
  - BACK DISORDER [None]
  - HERNIA [None]
  - INJECTION SITE ERYTHEMA [None]
  - INJECTION SITE WARMTH [None]
  - IRRITABLE BOWEL SYNDROME [None]
